FAERS Safety Report 18678685 (Version 1)
Quarter: 2020Q4

REPORT INFORMATION
  Report Type: Spontaneous
  Country: US (occurrence: US)
  Receive Date: 20201230
  Receipt Date: 20201230
  Transmission Date: 20210114
  Serious: No
  Sender: FDA-Public Use
  Company Number: US-AMGEN-USASP2020210904

PATIENT
  Age: 69 Year
  Sex: Female

DRUGS (1)
  1. OTEZLA [Suspect]
     Active Substance: APREMILAST
     Indication: OSTEOARTHRITIS
     Dosage: 30 MILLIGRAM, BID(TAKE ONE TABLET TWICE A DAY, APPROXIMATELY 12 HOURS APART)
     Route: 048

REACTIONS (3)
  - Gastric disorder [Not Recovered/Not Resolved]
  - Off label use [Unknown]
  - Arthropathy [Not Recovered/Not Resolved]
